FAERS Safety Report 12714355 (Version 1)
Quarter: 2016Q3

REPORT INFORMATION
  Report Type: Spontaneous
  Country: US (occurrence: US)
  Receive Date: 20160905
  Receipt Date: 20160905
  Transmission Date: 20161109
  Serious: No
  Sender: FDA-Public Use
  Company Number: US-JAZZ-2016-US-008948

PATIENT
  Sex: Female

DRUGS (7)
  1. XYREM [Suspect]
     Active Substance: SODIUM OXYBATE
     Indication: HYPERSOMNIA
     Dosage: 1.5 G, BID
     Route: 048
     Dates: start: 201512, end: 201601
  2. ALDACTONE [Concomitant]
     Active Substance: SPIRONOLACTONE
  3. METADATE [Concomitant]
     Active Substance: METHYLPHENIDATE HYDROCHLORIDE
  4. SAFYRAL [Concomitant]
     Active Substance: DROSPIRENONE\ETHINYL ESTRADIOL\LEVOMEFOLATE CALCIUM
  5. MODAFINIL. [Concomitant]
     Active Substance: MODAFINIL
  6. XYREM [Suspect]
     Active Substance: SODIUM OXYBATE
     Dosage: 2.25 G, BID
     Route: 048
     Dates: start: 201601
  7. ZIANA [Concomitant]
     Active Substance: CLINDAMYCIN PHOSPHATE\TRETINOIN

REACTIONS (1)
  - Hypersensitivity [Unknown]
